FAERS Safety Report 7135085-5 (Version None)
Quarter: 2010Q4

REPORT INFORMATION
  Report Type: 
  Country: None (occurrence: None)
  Receive Date: 20101203
  Receipt Date: 20101122
  Transmission Date: 20110411
  Serious: Yes (Hospitalization)
  Sender: FDA-Public Use
  Company Number: IT-ELI_LILLY_AND_COMPANY-IT201011005952

PATIENT
  Sex: Female

DRUGS (12)
  1. HUMALOG [Suspect]
     Indication: DIABETES MELLITUS
     Dosage: 20 U, DAILY (1/D)
     Dates: start: 20100823
  2. LANTUS [Concomitant]
     Indication: DIABETES MELLITUS
     Dosage: 26 U, DAILY (1/D)
     Route: 058
     Dates: start: 20100823
  3. REPAGLINIDE [Concomitant]
     Dosage: 6 MG, UNK
     Route: 048
  4. BISOPROLOL FUMARATE [Concomitant]
     Dosage: 1.25 MG, UNK
     Route: 048
  5. PANTOPRAZOLE [Concomitant]
     Dosage: 20 MG, UNK
     Route: 048
  6. FUROSEMIDE [Concomitant]
     Dosage: 125 MG, UNK
     Route: 048
  7. CALCITRIOL [Concomitant]
     Dosage: 0.75 D/F, UNK
     Route: 048
  8. ALLOPURINOL [Concomitant]
     Dosage: 150 MG, UNK
     Route: 048
  9. SIMVASTATIN [Concomitant]
     Dosage: 20 MG, UNK
     Route: 048
  10. PROMAZINE HYDROCHLORIDE [Concomitant]
     Dosage: 8 D/F, UNK
     Route: 048
  11. SODIUM BICARBONATE [Concomitant]
     Dosage: 500 MG, UNK
     Route: 048
  12. GLYCERYL TRINITRATE [Concomitant]
     Dosage: 20 D/F, UNK
     Route: 062

REACTIONS (2)
  - DISTURBANCE IN ATTENTION [None]
  - HYPOGLYCAEMIA [None]
